FAERS Safety Report 16255631 (Version 2)
Quarter: 2019Q2

REPORT INFORMATION
  Report Type: Spontaneous
  Country: US (occurrence: US)
  Receive Date: 20190430
  Receipt Date: 20190503
  Transmission Date: 20190711
  Serious: No
  Sender: FDA-Public Use
  Company Number: US-AMGEN-USASP2019067633

PATIENT
  Age: 61 Year
  Sex: Male

DRUGS (1)
  1. ENBREL [Suspect]
     Active Substance: ETANERCEPT
     Indication: RHEUMATOID ARTHRITIS
     Dosage: 50 MILLIGRAM, QWK
     Route: 065
     Dates: start: 2008

REACTIONS (7)
  - Memory impairment [Unknown]
  - Mobility decreased [Unknown]
  - Pain in extremity [Unknown]
  - Wrong technique in device usage process [Unknown]
  - Pain [Unknown]
  - Loss of personal independence in daily activities [Unknown]
  - Injection site pain [Unknown]

NARRATIVE: CASE EVENT DATE: 20190426
